FAERS Safety Report 14229395 (Version 2)
Quarter: 2018Q1

REPORT INFORMATION
  Report Type: Spontaneous
  Country: FR (occurrence: FR)
  Receive Date: 20171128
  Receipt Date: 20180103
  Transmission Date: 20180508
  Serious: Yes (Hospitalization)
  Sender: FDA-Public Use
  Company Number: FR-MERCK KGAA-2036121

PATIENT
  Age: 64 Year
  Sex: Female

DRUGS (4)
  1. NOVOTHYROX [Suspect]
     Active Substance: LEVOTHYROXINE SODIUM
     Indication: BASEDOW^S DISEASE
     Dates: start: 201706
  2. LEVOTHYROXINE SODIUM. [Suspect]
     Active Substance: LEVOTHYROXINE SODIUM
  3. RASILEZ [Concomitant]
     Active Substance: ALISKIREN
  4. CELECTOL [Concomitant]
     Active Substance: CELIPROLOL HYDROCHLORIDE

REACTIONS (13)
  - Depressive symptom [Not Recovered/Not Resolved]
  - Blood thyroid stimulating hormone increased [Not Recovered/Not Resolved]
  - Muscle fatigue [Not Recovered/Not Resolved]
  - Chest pain [Not Recovered/Not Resolved]
  - Depressed mood [Not Recovered/Not Resolved]
  - Fatigue [Not Recovered/Not Resolved]
  - Asthenia [Not Recovered/Not Resolved]
  - Drug dose omission [Not Recovered/Not Resolved]
  - Myalgia [Not Recovered/Not Resolved]
  - Headache [Not Recovered/Not Resolved]
  - Nausea [Not Recovered/Not Resolved]
  - Pain [Not Recovered/Not Resolved]
  - Muscle spasms [Not Recovered/Not Resolved]

NARRATIVE: CASE EVENT DATE: 2017
